FAERS Safety Report 9106714 (Version 1)
Quarter: 2013Q1

REPORT INFORMATION
  Report Type: Report from Study
  Country: DE (occurrence: DE)
  Receive Date: 20130221
  Receipt Date: 20130221
  Transmission Date: 20140127
  Serious: Yes (Hospitalization)
  Sender: FDA-Public Use
  Company Number: PHHO2013DE002584

PATIENT
  Sex: Female
  Weight: 73.1 kg

DRUGS (4)
  1. ZOLEDRONATE [Suspect]
     Indication: BREAST CANCER
     Dosage: 4 MG, UNK
     Route: 042
     Dates: start: 20060424
  2. TAMOXIFEN [Suspect]
     Indication: BREAST CANCER
     Dosage: 20 MG, UNK
     Route: 048
     Dates: start: 20060107
  3. VITAMIN D [Concomitant]
  4. ADDITIVA CALCIUM [Concomitant]

REACTIONS (1)
  - Lymphoedema [Not Recovered/Not Resolved]
